FAERS Safety Report 5057583-0 (Version None)
Quarter: 2006Q3

REPORT INFORMATION
  Report Type: 
  Country: None (occurrence: None)
  Receive Date: 20060721
  Receipt Date: 20051208
  Transmission Date: 20061208
  Serious: No
  Sender: FDA-Public Use
  Company Number: US-GLAXOSMITHKLINE-A0585126A

PATIENT
  Age: 50 Year
  Sex: Male

DRUGS (12)
  1. AVANDIA [Suspect]
     Dosage: 4MG PER DAY
     Route: 048
     Dates: start: 20051001
  2. GLUCOPHAGE [Concomitant]
  3. LIPITOR [Concomitant]
  4. PAXIL [Concomitant]
  5. CARDIZEM [Concomitant]
  6. PROTONIX [Concomitant]
  7. ANAPRIL [Concomitant]
  8. CLARITIN [Concomitant]
  9. METFORMIN [Concomitant]
  10. GEMFIBROZIL [Concomitant]
  11. BUPROPION HCL [Concomitant]
  12. PAXIL [Concomitant]

REACTIONS (2)
  - SWELLING [None]
  - WEIGHT INCREASED [None]
